FAERS Safety Report 23466133 (Version 1)
Quarter: 2024Q1

REPORT INFORMATION
  Report Type: Spontaneous
  Country: DE (occurrence: DE)
  Receive Date: 20240201
  Receipt Date: 20240201
  Transmission Date: 20240410
  Serious: Yes (Other)
  Sender: FDA-Public Use
  Company Number: DE-PFIZER INC-202400028489

PATIENT

DRUGS (1)
  1. XALKORI [Suspect]
     Active Substance: CRIZOTINIB
     Indication: Anaplastic lymphoma kinase gene mutation
     Dosage: UNK, 2X/DAY
     Route: 064

REACTIONS (4)
  - Maternal exposure during pregnancy [Unknown]
  - Growth retardation [Unknown]
  - Renal dysplasia [Unknown]
  - Premature baby [Unknown]
